FAERS Safety Report 4510040-X (Version None)
Quarter: 2004Q4

REPORT INFORMATION
  Report Type: 
  Country: None (occurrence: None)
  Receive Date: 20041124
  Receipt Date: 20041110
  Transmission Date: 20050328
  Serious: Yes (Hospitalization, Disabling)
  Sender: FDA-Public Use
  Company Number: PHBS2004JP15207

PATIENT
  Age: 60 Year
  Sex: Male

DRUGS (1)
  1. VOLTAREN [Suspect]
     Indication: PYREXIA
     Dates: start: 20001201, end: 20001201

REACTIONS (20)
  - ANTIBODY TEST POSITIVE [None]
  - BLOOD GLUCOSE DECREASED [None]
  - CSF TEST ABNORMAL [None]
  - DEPRESSED LEVEL OF CONSCIOUSNESS [None]
  - DISORIENTATION [None]
  - DYSKINESIA [None]
  - ENURESIS [None]
  - HEADACHE [None]
  - HEMIPARESIS [None]
  - MENINGITIS ASEPTIC [None]
  - NAUSEA [None]
  - NEUROPATHY [None]
  - PARALYSIS [None]
  - PLEOCYTOSIS [None]
  - PROTEIN TOTAL ABNORMAL [None]
  - RESTLESSNESS [None]
  - SALIVARY GLAND ENLARGEMENT [None]
  - SALIVARY HYPERSECRETION [None]
  - SJOGREN'S SYNDROME [None]
  - URINARY RETENTION [None]
